FAERS Safety Report 6677187-3 (Version None)
Quarter: 2010Q2

REPORT INFORMATION
  Report Type: 
  Country: None (occurrence: None)
  Receive Date: 20100412
  Receipt Date: 20100406
  Transmission Date: 20101027
  Serious: Yes (Death)
  Sender: FDA-Public Use
  Company Number: US-GILEAD-2010-0028055

PATIENT
  Sex: Male

DRUGS (13)
  1. LETAIRIS [Suspect]
     Indication: PULMONARY ARTERIAL HYPERTENSION
     Route: 048
     Dates: start: 20080423, end: 20100217
  2. COUMADIN [Concomitant]
  3. FUROSEMIDE [Concomitant]
  4. METOPROLOL TARTRATE [Concomitant]
  5. NIFEDIPINE [Concomitant]
  6. ALBUTEROL [Concomitant]
  7. ADVAIR DISKUS 100/50 [Concomitant]
  8. FOSAMAX [Concomitant]
  9. PREDNISONE [Concomitant]
  10. NEXIUM [Concomitant]
  11. SPIRIVA [Concomitant]
  12. KLOR-CON [Concomitant]
  13. VITAMIN D [Concomitant]

REACTIONS (2)
  - CHRONIC RESPIRATORY FAILURE [None]
  - PULMONARY FIBROSIS [None]
